FAERS Safety Report 10512469 (Version 1)
Quarter: 2014Q4

REPORT INFORMATION
  Report Type: Spontaneous
  Country: AR (occurrence: AR)
  Receive Date: 20141011
  Receipt Date: 20141011
  Transmission Date: 20150528
  Serious: Yes (Hospitalization)
  Sender: FDA-Public Use
  Company Number: PHHY2014AR131956

PATIENT
  Sex: Female

DRUGS (1)
  1. RASILEZ D [Suspect]
     Active Substance: ALISKIREN\HYDROCHLOROTHIAZIDE
     Indication: BLOOD PRESSURE INCREASED
     Dosage: 300/12.5 MG, UNK
     Route: 048

REACTIONS (1)
  - Musculoskeletal discomfort [Unknown]
